FAERS Safety Report 5550986-7 (Version None)
Quarter: 2007Q4

REPORT INFORMATION
  Report Type: 
  Country: None (occurrence: None)
  Receive Date: 20071212
  Receipt Date: 20071204
  Transmission Date: 20080405
  Serious: Yes (Hospitalization)
  Sender: FDA-Public Use
  Company Number: US-MERCK-0712USA01750

PATIENT

DRUGS (1)
  1. JANUVIA [Suspect]
     Route: 048

REACTIONS (1)
  - RENAL FAILURE ACUTE [None]
